FAERS Safety Report 7152829-7 (Version None)
Quarter: 2010Q4

REPORT INFORMATION
  Report Type: 
  Country: None (occurrence: None)
  Receive Date: 20101213
  Receipt Date: 20101202
  Transmission Date: 20110411
  Serious: Yes (Hospitalization)
  Sender: FDA-Public Use
  Company Number: PHHO2010DE18188

PATIENT
  Sex: Male

DRUGS (3)
  1. CERTICAN [Suspect]
     Indication: LIVER TRANSPLANT
     Dosage: UNK
     Route: 048
     Dates: start: 20100910
  2. SIMULECT [Suspect]
     Indication: LIVER TRANSPLANT
     Route: 042
  3. PROGRAF [Suspect]
     Indication: LIVER TRANSPLANT
     Dosage: 2.0 / 2.5 MG
     Route: 048
     Dates: start: 20100910

REACTIONS (3)
  - HEPATIC STEATOSIS [None]
  - POST PROCEDURAL INFECTION [None]
  - PYREXIA [None]
